FAERS Safety Report 8087971-X (Version None)
Quarter: 2012Q1

REPORT INFORMATION
  Report Type: 
  Country: None (occurrence: None)
  Receive Date: 20120130
  Receipt Date: 20120119
  Transmission Date: 20120608
  Serious: Yes (Hospitalization)
  Sender: FDA-Public Use
  Company Number: NL-ASTRAZENECA-2011SE76383

PATIENT
  Age: 32535 Day
  Sex: Female

DRUGS (6)
  1. FERROFUMARATE [Concomitant]
     Indication: ANAEMIA
     Dosage: 200 MG
     Route: 048
     Dates: start: 20100901
  2. ACENOCOUMAROL [Concomitant]
     Indication: ATRIAL FIBRILLATION
     Dosage: THREE TIMES A DAY
     Route: 048
     Dates: start: 20090101
  3. ANTICOAGULANTIA [Concomitant]
  4. CHLOORTALIDON [Concomitant]
     Indication: HYPERTENSION
     Dosage: 25 MG, UNKNOWN
     Route: 048
     Dates: start: 20090101
  5. VIMOVO [Suspect]
     Indication: ARTHRALGIA
     Dosage: 500/20 MG, TWO TIMES A DAY
     Route: 048
     Dates: start: 20110926
  6. ENALAPRIL [Concomitant]
     Indication: HYPERTENSION
     Dosage: 20 MG, UNKNOWN
     Route: 048
     Dates: start: 20090101

REACTIONS (3)
  - GASTRIC ULCER [None]
  - CEREBROVASCULAR ACCIDENT [None]
  - GASTRIC HAEMORRHAGE [None]
